FAERS Safety Report 5534574-4 (Version None)
Quarter: 2007Q4

REPORT INFORMATION
  Report Type: 
  Country: None (occurrence: None)
  Receive Date: 20071205
  Receipt Date: 20071127
  Transmission Date: 20080405
  Serious: Yes (Other)
  Sender: FDA-Public Use
  Company Number: US-ELI_LILLY_AND_COMPANY-US200711006720

PATIENT
  Age: 13 Year
  Sex: Male

DRUGS (2)
  1. STRATTERA [Suspect]
     Indication: ATTENTION DEFICIT/HYPERACTIVITY DISORDER
     Dosage: 18 MG, UNK
     Route: 048
     Dates: start: 20040101, end: 20040101
  2. STRATTERA [Suspect]
     Dosage: 25 MG, UNK
     Route: 048
     Dates: start: 20040101, end: 20040101

REACTIONS (1)
  - SELF-INJURIOUS IDEATION [None]
